FAERS Safety Report 6366150-8 (Version None)
Quarter: 2009Q3

REPORT INFORMATION
  Report Type: 
  Country: None (occurrence: None)
  Receive Date: 20090921
  Receipt Date: 20090908
  Transmission Date: 20100115
  Serious: Yes (Hospitalization)
  Sender: FDA-Public Use
  Company Number: US-BIOGENIDEC-2008BI003612

PATIENT
  Age: 60 Year
  Sex: Female
  Weight: 77 kg

DRUGS (4)
  1. AVONEX [Suspect]
     Indication: MULTIPLE SCLEROSIS
     Route: 030
     Dates: start: 20070901, end: 20090107
  2. AVONEX [Suspect]
     Route: 030
     Dates: start: 20090809
  3. AVONEX [Suspect]
     Route: 030
     Dates: start: 19990620, end: 20030101
  4. AVONEX [Suspect]
     Route: 030
     Dates: start: 20030101

REACTIONS (5)
  - BACTERIAL INFECTION [None]
  - ENTEROSTOMY [None]
  - ILEOSTOMY [None]
  - LOWER RESPIRATORY TRACT INFECTION FUNGAL [None]
  - THROMBOSIS [None]
